FAERS Safety Report 17714508 (Version 1)
Quarter: 2020Q2

REPORT INFORMATION
  Report Type: Spontaneous
  Country: DE (occurrence: DE)
  Receive Date: 20200427
  Receipt Date: 20200427
  Transmission Date: 20200714
  Serious: Yes (Other)
  Sender: FDA-Public Use
  Company Number: NVSC2020DE110086

PATIENT
  Sex: Female
  Weight: 49.4 kg

DRUGS (13)
  1. RITUXIMAB. [Suspect]
     Active Substance: RITUXIMAB
     Indication: PRODUCT USED FOR UNKNOWN INDICATION
     Dosage: UNK (SIX CYCLES)
     Route: 065
     Dates: start: 20141029, end: 201502
  2. DEXAMETHASONE. [Suspect]
     Active Substance: DEXAMETHASONE
     Indication: PRODUCT USED FOR UNKNOWN INDICATION
     Dosage: UNK (FOUR CYCLES, GEMCITABINE 750 MG/M2/CARBOPLATIN AUC 4/DEXAMETHASONE 40 MG)
     Route: 065
     Dates: start: 201702, end: 201704
  3. IFOSFAMIDE. [Concomitant]
     Active Substance: IFOSFAMIDE
     Indication: DIFFUSE LARGE B-CELL LYMPHOMA
     Dosage: ONE CYCLE
     Route: 065
     Dates: start: 20200104
  4. CISPLATIN. [Suspect]
     Active Substance: CISPLATIN
     Indication: DIFFUSE LARGE B-CELL LYMPHOMA
     Dosage: UNK (FOUR CYCLES, GEMCITABINE 750 MG/M2/CARBOPLATIN AUC 4/DEXAMETHASONE 40 MG)
     Route: 065
     Dates: start: 201702, end: 201704
  5. GEMCITABINE. [Suspect]
     Active Substance: GEMCITABINE
     Indication: PRODUCT USED FOR UNKNOWN INDICATION
     Dosage: UNK (FOUR CYCLES, GEMCITABINE 750 MG/M2/CARBOPLATIN AUC 4/DEXAMETHASONE 40 MG)
     Route: 065
     Dates: start: 201702, end: 201704
  6. PREDNISONE. [Concomitant]
     Active Substance: PREDNISONE
     Indication: DIFFUSE LARGE B-CELL LYMPHOMA
     Dosage: UNK
     Route: 065
  7. CHOP [Suspect]
     Active Substance: CYCLOPHOSPHAMIDE\DOXORUBICIN\PREDNISONE\VINCRISTINE
     Indication: DIFFUSE LARGE B-CELL LYMPHOMA
     Dosage: UNK (SIX CYCLES)
     Route: 065
     Dates: start: 20141029, end: 201502
  8. RITUXIMAB. [Suspect]
     Active Substance: RITUXIMAB
     Dosage: 375 MG/M2, FOUR CYCLES
     Route: 065
     Dates: start: 201702, end: 201702
  9. RITUXIMAB. [Suspect]
     Active Substance: RITUXIMAB
     Dosage: UNK (SIX CYCLES)
     Route: 065
     Dates: start: 201902, end: 201907
  10. BENDAMUSTINE [Suspect]
     Active Substance: BENDAMUSTINE
     Indication: DIFFUSE LARGE B-CELL LYMPHOMA
     Dosage: UNK (SIX CYCLES)
     Route: 065
     Dates: start: 201902, end: 201907
  11. VP-16 [Concomitant]
     Active Substance: ETOPOSIDE
     Indication: DIFFUSE LARGE B-CELL LYMPHOMA
     Dosage: UNK
     Route: 065
  12. PIXANTRONE [Concomitant]
     Active Substance: PIXANTRONE
     Indication: DIFFUSE LARGE B-CELL LYMPHOMA
     Dosage: UNK (ONE CYCLE)
     Route: 065
     Dates: start: 201908, end: 201909
  13. METHOTREXATE. [Concomitant]
     Active Substance: METHOTREXATE
     Indication: DIFFUSE LARGE B-CELL LYMPHOMA
     Dosage: UNK
     Route: 065

REACTIONS (2)
  - Disease progression [Unknown]
  - Drug ineffective [Unknown]
